FAERS Safety Report 15297063 (Version 1)
Quarter: 2018Q4

REPORT INFORMATION
  Report Type: Spontaneous
  Country: FR (occurrence: FR)
  Receive Date: 20180820
  Receipt Date: 20180820
  Transmission Date: 20190204
  Serious: Yes (Other)
  Sender: FDA-Public Use
  Company Number: FR-MERCK KGAA-2053951

PATIENT
  Age: 83 Year
  Sex: Male

DRUGS (3)
  1. AUGMENTIN [Suspect]
     Active Substance: AMOXICILLIN\CLAVULANATE POTASSIUM
     Route: 048
     Dates: start: 20171117, end: 20171120
  2. NOVOTHYROX [Suspect]
     Active Substance: LEVOTHYROXINE SODIUM
     Indication: HYPOTHYROIDISM
     Route: 048
     Dates: start: 201505
  3. PREVISCAN (FLUINDIONE) [Suspect]
     Active Substance: FLUINDIONE
     Route: 048
     Dates: start: 2015, end: 20171124

REACTIONS (4)
  - International normalised ratio increased [Recovered/Resolved]
  - Haemorrhagic anaemia [Recovered/Resolved]
  - Potentiating drug interaction [Recovered/Resolved]
  - Haematoma [Recovered/Resolved]

NARRATIVE: CASE EVENT DATE: 20171123
